FAERS Safety Report 11828310 (Version 1)
Quarter: 2015Q4

REPORT INFORMATION
  Report Type: Spontaneous
  Country: PE (occurrence: PE)
  Receive Date: 20151211
  Receipt Date: 20151211
  Transmission Date: 20160305
  Serious: Yes (Other)
  Sender: FDA-Public Use
  Company Number: PE-PFIZER INC-2015325576

PATIENT
  Age: 79 Year
  Sex: Female

DRUGS (1)
  1. XALATAN [Suspect]
     Active Substance: LATANOPROST
     Dosage: ONE EYE DROP ON EACH EYE EVERY NIGHT

REACTIONS (3)
  - Femur fracture [Not Recovered/Not Resolved]
  - Gait disturbance [Unknown]
  - Accident [Not Recovered/Not Resolved]

NARRATIVE: CASE EVENT DATE: 201511
